FAERS Safety Report 17549383 (Version 4)
Quarter: 2020Q3

REPORT INFORMATION
  Report Type: Report from Study
  Country: US (occurrence: US)
  Receive Date: 20200317
  Receipt Date: 20200721
  Transmission Date: 20201102
  Serious: No
  Sender: FDA-Public Use
  Company Number: NVSC2020US071423

PATIENT
  Age: 78 Year
  Sex: Male

DRUGS (4)
  1. ENTRESTO [Suspect]
     Active Substance: SACUBITRIL\VALSARTAN
     Dosage: 24.26 MG, BID
     Route: 048
     Dates: start: 20200226, end: 20200618
  2. ENTRESTO [Suspect]
     Active Substance: SACUBITRIL\VALSARTAN
     Indication: CARDIAC FAILURE
     Dosage: 1 DF (24.26 MG), BID
     Route: 048
     Dates: start: 20200226, end: 20200311
  3. ENTRESTO [Suspect]
     Active Substance: SACUBITRIL\VALSARTAN
     Dosage: 1 DF (24.26 MG), BID
     Route: 048
     Dates: end: 20200618
  4. ENTRESTO [Suspect]
     Active Substance: SACUBITRIL\VALSARTAN
     Dosage: 1 DF (24.26 MG), QD
     Route: 048
     Dates: end: 20200514

REACTIONS (5)
  - Dizziness [Recovered/Resolved]
  - Hypotension [Recovering/Resolving]
  - Somnolence [Not Recovered/Not Resolved]
  - Blood pressure abnormal [Recovering/Resolving]
  - Pollakiuria [Recovered/Resolved]

NARRATIVE: CASE EVENT DATE: 20200226
